FAERS Safety Report 20479565 (Version 2)
Quarter: 2022Q1

REPORT INFORMATION
  Report Type: Spontaneous
  Country: ES (occurrence: None)
  Receive Date: 20220216
  Receipt Date: 20220217
  Transmission Date: 20220424
  Serious: Yes (Other)
  Sender: FDA-Public Use
  Company Number: 2022A062254

PATIENT
  Age: 49 Year
  Sex: Male

DRUGS (2)
  1. ZOMIG [Suspect]
     Active Substance: ZOLMITRIPTAN
     Indication: Cluster headache
     Dosage: AS REQUIRED AS REQUIRED
     Route: 045
     Dates: start: 20211222
  2. VERAPAMIL HYDROCHLORIDE [Suspect]
     Active Substance: VERAPAMIL HYDROCHLORIDE
     Indication: Cluster headache
     Route: 048
     Dates: start: 20211222

REACTIONS (3)
  - Hypertension [Recovering/Resolving]
  - Hypertensive crisis [Recovering/Resolving]
  - Tachycardia [Recovered/Resolved]

NARRATIVE: CASE EVENT DATE: 20211223
